FAERS Safety Report 7828088-6 (Version None)
Quarter: 2011Q4

REPORT INFORMATION
  Report Type: 
  Country: None (occurrence: None)
  Receive Date: 20111020
  Receipt Date: 20111018
  Transmission Date: 20120403
  Serious: Yes (Death)
  Sender: FDA-Public Use
  Company Number: LB-SANOFI-AVENTIS-2011SA068504

PATIENT
  Age: 66 Year
  Weight: 90 kg

DRUGS (1)
  1. LOVENOX [Suspect]
     Route: 058
     Dates: start: 20111001, end: 20111001

REACTIONS (1)
  - PULMONARY EMBOLISM [None]
